FAERS Safety Report 9296722 (Version 1)
Quarter: 2013Q2

REPORT INFORMATION
  Report Type: Spontaneous
  Country: US (occurrence: US)
  Receive Date: 20130517
  Receipt Date: 20130517
  Transmission Date: 20140414
  Serious: No
  Sender: FDA-Public Use
  Company Number: US-B.I. PHARMACEUTICALS,INC./RIDGEFIELD-2013-BI-13316BP

PATIENT
  Sex: Female

DRUGS (7)
  1. PRADAXA [Suspect]
  2. METOPROLOL [Concomitant]
     Dosage: 50 MG
  3. LOSARTAN [Concomitant]
  4. TYLENOL 2 [Concomitant]
  5. TEMAZEPAM [Concomitant]
     Dosage: 15 MG
  6. CALCIUM [Concomitant]
     Dosage: 1000 MG
  7. TUMS [Concomitant]

REACTIONS (4)
  - Diarrhoea [Unknown]
  - Decreased appetite [Unknown]
  - Flatulence [Unknown]
  - Weight decreased [Unknown]
